FAERS Safety Report 7394189-2 (Version None)
Quarter: 2011Q2

REPORT INFORMATION
  Report Type: 
  Country: None (occurrence: None)
  Receive Date: 20110405
  Receipt Date: 20110324
  Transmission Date: 20111010
  Serious: Yes (Hospitalization, Other)
  Sender: FDA-Public Use
  Company Number: ES-ELI_LILLY_AND_COMPANY-ES201103006731

PATIENT
  Sex: Male
  Weight: 82 kg

DRUGS (6)
  1. ACTONEL [Concomitant]
     Dosage: UNK, WEEKLY (1/W)
     Route: 048
  2. NATECAL D [Concomitant]
     Indication: MINERAL SUPPLEMENTATION
     Dosage: UNK, QD
     Route: 048
  3. AVIDART [Concomitant]
     Indication: PROSTATE CANCER
     Dosage: 0.5 MG, QD
     Route: 048
  4. KEPPRA [Concomitant]
     Indication: EPILEPSY
     Dosage: 500 MG, 1/2 MORNING 1/2 EVENING
     Route: 048
  5. FORTEO [Suspect]
     Indication: OSTEOPOROSIS
     Dosage: 20 UG, QD
     Dates: start: 20110304, end: 20110301
  6. OMEPRAZOLE [Concomitant]
     Indication: PROPHYLAXIS
     Dosage: 20 MG, QD
     Route: 048

REACTIONS (3)
  - EPILEPSY [None]
  - MUSCULOSKELETAL STIFFNESS [None]
  - APHASIA [None]
